FAERS Safety Report 13241417 (Version 2)
Quarter: 2017Q2

REPORT INFORMATION
  Report Type: Spontaneous
  Country: AZ (occurrence: AZ)
  Receive Date: 20170216
  Receipt Date: 20170411
  Transmission Date: 20170830
  Serious: Yes (Other)
  Sender: FDA-Public Use
  Company Number: AZ-NOVOPROD-531294

PATIENT
  Sex: Male
  Weight: 4 kg

DRUGS (2)
  1. LEVEMIR [Suspect]
     Active Substance: INSULIN DETEMIR
     Indication: TYPE 1 DIABETES MELLITUS
     Dosage: 12 U, QD
     Route: 064
     Dates: start: 201604, end: 20161213
  2. NOVORAPID [Suspect]
     Active Substance: INSULIN ASPART
     Indication: TYPE 1 DIABETES MELLITUS
     Dosage: 18 U, QD
     Route: 064
     Dates: start: 20160325, end: 20161213

REACTIONS (5)
  - Cyst [Unknown]
  - Foetal exposure during pregnancy [Recovered/Resolved]
  - Intracranial pressure increased [Recovered/Resolved]
  - Staphylococcal infection [Recovered/Resolved]
  - Candida infection [Recovered/Resolved]

NARRATIVE: CASE EVENT DATE: 20160325
